FAERS Safety Report 8241397 (Version 2)
Quarter: 2016Q4

REPORT INFORMATION
  Report Type: Spontaneous
  Country: JP (occurrence: JP)
  Receive Date: 20111111
  Receipt Date: 20161007
  Transmission Date: 20170207
  Serious: Yes (Hospitalization, Other)
  Sender: FDA-Public Use
  Company Number: JP-GLAXOSMITHKLINE-B0750177A

PATIENT
  Age: 31 Year
  Sex: Female

DRUGS (3)
  1. DEPAKENE [Concomitant]
     Active Substance: VALPROIC ACID
     Indication: EPILEPSY
     Route: 048
     Dates: start: 201010, end: 20110505
  2. LAMOTRIGINE. [Suspect]
     Active Substance: LAMOTRIGINE
     Indication: EPILEPSY
     Route: 048
     Dates: start: 20110112, end: 20110208
  3. PHENYTOIN. [Concomitant]
     Active Substance: PHENYTOIN
     Route: 065

REACTIONS (17)
  - Alanine aminotransferase increased [Recovering/Resolving]
  - Drug reaction with eosinophilia and systemic symptoms [Recovering/Resolving]
  - Aspartate aminotransferase increased [Recovering/Resolving]
  - Pyrexia [Recovering/Resolving]
  - White blood cell count increased [Unknown]
  - Platelet count decreased [Unknown]
  - Rash erythematous [Recovering/Resolving]
  - Hepatic function abnormal [Recovering/Resolving]
  - Drug cross-reactivity [Unknown]
  - C-reactive protein increased [Unknown]
  - Drug eruption [Recovering/Resolving]
  - Blood lactate dehydrogenase increased [Unknown]
  - Generalised erythema [Recovering/Resolving]
  - Rash [Unknown]
  - White blood cell count decreased [Unknown]
  - Blood creatinine increased [Unknown]
  - Blood creatine phosphokinase decreased [Unknown]

NARRATIVE: CASE EVENT DATE: 2011
